FAERS Safety Report 16290343 (Version 1)
Quarter: 2019Q2

REPORT INFORMATION
  Report Type: Spontaneous
  Country: US (occurrence: US)
  Receive Date: 20190404
  Receipt Date: 20190404
  Transmission Date: 20190711
  Serious: No
  Sender: FDA-Public Use
  Company Number: None

PATIENT
  Age: 77 Year
  Weight: 81.65 kg

DRUGS (1)
  1. OFEV [Suspect]
     Active Substance: NINTEDANIB
     Dosage: ?          OTHER FREQUENCY:12 HOURS ;?
     Route: 048
     Dates: start: 20190126, end: 20190128

REACTIONS (5)
  - Vomiting [None]
  - Drug intolerance [None]
  - Diarrhoea [None]
  - Insurance issue [None]
  - Economic problem [None]

NARRATIVE: CASE EVENT DATE: 20190126
